FAERS Safety Report 4292242-3 (Version None)
Quarter: 2004Q1

REPORT INFORMATION
  Report Type: 
  Country: None (occurrence: None)
  Receive Date: 20040126
  Receipt Date: 20031001
  Transmission Date: 20041129
  Serious: No
  Sender: FDA-Public Use
  Company Number: USA030742488

PATIENT
  Age: 70 Year
  Sex: Female
  Weight: 48 kg

DRUGS (5)
  1. FORTEO [Suspect]
     Indication: OSTEOPOROSIS
     Dosage: 20UG / DAY
     Dates: start: 20030723
  2. ZOCOR [Concomitant]
  3. CALCIUM [Concomitant]
  4. VITAMIN D [Concomitant]
  5. MAGNESIUM [Concomitant]

REACTIONS (12)
  - ARTHRALGIA [None]
  - BACK PAIN [None]
  - CHILLS [None]
  - FEELING ABNORMAL [None]
  - FEELING HOT [None]
  - HEADACHE [None]
  - INFLUENZA LIKE ILLNESS [None]
  - MUSCLE CRAMP [None]
  - NAUSEA [None]
  - PAIN [None]
  - PAIN IN EXTREMITY [None]
  - VERTIGO [None]
